FAERS Safety Report 8780485 (Version 1)
Quarter: 2012Q4

REPORT INFORMATION
  Report Type: Spontaneous
  Country: US (occurrence: None)
  Receive Date: 20120906
  Receipt Date: 20120906
  Transmission Date: 20130627
  Serious: Yes (Death, Life-Threatening, Hospitalization)
  Sender: FDA-Public Use
  Company Number: None

PATIENT
  Age: 60 Year
  Sex: Female
  Weight: 60.78 kg

DRUGS (4)
  1. FLUOROURACIL [Suspect]
     Indication: RECTAL CANCER STAGE IV
     Dosage: STANDARD
     Route: 041
     Dates: start: 20120725, end: 20120727
  2. FOLFOX4 [Concomitant]
  3. LEUCOVORIN [Concomitant]
  4. OXALIPLATIN [Concomitant]

REACTIONS (2)
  - Neutropenia [None]
  - Mucosal inflammation [None]
